FAERS Safety Report 25123010 (Version 1)
Quarter: 2025Q1

REPORT INFORMATION
  Report Type: Spontaneous
  Country: FR (occurrence: FR)
  Receive Date: 20250326
  Receipt Date: 20250326
  Transmission Date: 20250408
  Serious: Yes (Hospitalization, Other)
  Sender: AUROBINDO
  Company Number: FR-AFSSAPS-PO2025000243

PATIENT
  Age: 85 Year
  Sex: Male
  Weight: 75.9 kg

DRUGS (2)
  1. LEVOFLOXACIN HEMIHYDRATE [Suspect]
     Active Substance: LEVOFLOXACIN
     Indication: Prostatitis Escherichia coli
     Dosage: 500 MILLIGRAM, EVERY OTHER DAY [J1 500MG PUIS 250MG/48H]
     Route: 048
     Dates: start: 20250221, end: 20250225
  2. IOMERON [Suspect]
     Active Substance: IOMEPROL
     Indication: Computerised tomogram heart
     Route: 042
     Dates: start: 20250224, end: 20250224

REACTIONS (1)
  - Acute generalised exanthematous pustulosis [Recovering/Resolving]

NARRATIVE: CASE EVENT DATE: 20250224
